FAERS Safety Report 12919930 (Version 2)
Quarter: 2016Q4

REPORT INFORMATION
  Report Type: Spontaneous
  Country: KR (occurrence: KR)
  Receive Date: 20161108
  Receipt Date: 20161110
  Transmission Date: 20170207
  Serious: Yes (Other)
  Sender: FDA-Public Use
  Company Number: KR-JNJFOC-20161022641

PATIENT

DRUGS (7)
  1. ACETAMINOPHEN. [Suspect]
     Active Substance: ACETAMINOPHEN
     Route: 065
  2. ACETAMINOPHEN. [Suspect]
     Active Substance: ACETAMINOPHEN
     Indication: PRODUCT USED FOR UNKNOWN INDICATION
     Route: 065
  3. TRAMADOL. [Suspect]
     Active Substance: TRAMADOL
     Indication: PRODUCT USED FOR UNKNOWN INDICATION
     Route: 065
  4. CHLORAL HYDRATE [Suspect]
     Active Substance: CHLORAL HYDRATE
     Indication: PRODUCT USED FOR UNKNOWN INDICATION
     Route: 065
  5. ASPIRIN. [Suspect]
     Active Substance: ASPIRIN
     Indication: PRODUCT USED FOR UNKNOWN INDICATION
     Route: 065
  6. KETAMINE [Suspect]
     Active Substance: KETAMINE
     Indication: PRODUCT USED FOR UNKNOWN INDICATION
     Route: 065
  7. MIDAZOLAM [Suspect]
     Active Substance: MIDAZOLAM\MIDAZOLAM HYDROCHLORIDE
     Indication: PRODUCT USED FOR UNKNOWN INDICATION
     Route: 065

REACTIONS (35)
  - Myalgia [Unknown]
  - Oedema [Unknown]
  - Chest discomfort [Unknown]
  - Dyspnoea [Unknown]
  - Insomnia [Unknown]
  - Adverse event [Unknown]
  - Pruritus [Unknown]
  - Hepatic enzyme increased [Unknown]
  - Thrombocytopenia [Unknown]
  - Pyrexia [Unknown]
  - Urinary retention [Unknown]
  - Jaundice [Unknown]
  - Abnormal behaviour [Unknown]
  - Diarrhoea [Unknown]
  - Nausea [Unknown]
  - Depression [Unknown]
  - Rhinorrhoea [Unknown]
  - Vomiting [Unknown]
  - Mental impairment [Unknown]
  - Arrhythmia [Unknown]
  - Shock [Unknown]
  - Neutropenia [Unknown]
  - Hypotension [Unknown]
  - Nasal obstruction [Unknown]
  - Cough [Unknown]
  - Anaphylactic reaction [Unknown]
  - Wheezing [Unknown]
  - Rash [Unknown]
  - Angioedema [Unknown]
  - Pancytopenia [Unknown]
  - Urticaria [Unknown]
  - Palpitations [Unknown]
  - Headache [Unknown]
  - Dizziness [Unknown]
  - Abdominal pain [Unknown]
